FAERS Safety Report 25110023 (Version 1)
Quarter: 2025Q1

REPORT INFORMATION
  Report Type: Spontaneous
  Country: CN (occurrence: CN)
  Receive Date: 20250324
  Receipt Date: 20250324
  Transmission Date: 20250408
  Serious: Yes (Other)
  Sender: QILU PHARMACEUTICAL
  Company Number: CN-QILU PHARMACEUTICAL CO.LTD.-QLU-000055-2025

PATIENT
  Age: 73 Year
  Sex: Male

DRUGS (7)
  1. CISPLATIN [Suspect]
     Active Substance: CISPLATIN
     Indication: Metastases to penis
     Route: 065
     Dates: start: 20210410, end: 20210803
  2. CISPLATIN [Suspect]
     Active Substance: CISPLATIN
     Indication: Small cell lung cancer
     Route: 065
     Dates: start: 20220125, end: 20220530
  3. ETOPOSIDE [Suspect]
     Active Substance: ETOPOSIDE
     Indication: Metastases to penis
     Route: 065
     Dates: start: 20210410, end: 20210803
  4. ETOPOSIDE [Suspect]
     Active Substance: ETOPOSIDE
     Indication: Small cell lung cancer
     Route: 065
     Dates: start: 20220125, end: 20220530
  5. TORIPALIMAB [Concomitant]
     Active Substance: TORIPALIMAB
     Route: 065
     Dates: start: 20210410, end: 20210803
  6. TORIPALIMAB [Concomitant]
     Active Substance: TORIPALIMAB
     Indication: Small cell lung cancer
  7. ZOLEDRONIC ACID [Concomitant]
     Active Substance: ZOLEDRONIC ACID
     Indication: Metastases to bone
     Dosage: EVERY 28 DAYS
     Route: 065
     Dates: start: 2021, end: 2021

REACTIONS (3)
  - Neurotoxicity [Recovered/Resolved]
  - Leukopenia [Recovered/Resolved]
  - Off label use [Recovered/Resolved]

NARRATIVE: CASE EVENT DATE: 20210410
